FAERS Safety Report 6437150-4 (Version None)
Quarter: 2009Q4

REPORT INFORMATION
  Report Type: 
  Country: None (occurrence: None)
  Receive Date: 20091112
  Receipt Date: 20091102
  Transmission Date: 20100525
  Serious: Yes (Hospitalization)
  Sender: FDA-Public Use
  Company Number: CA-ELI_LILLY_AND_COMPANY-CA200911000985

PATIENT
  Age: 75 Year
  Sex: Female

DRUGS (11)
  1. FORTEO [Suspect]
     Indication: OSTEOPOROSIS
     Dosage: 20 UG, DAILY (1/D)
     Route: 058
     Dates: start: 20080722
  2. PARIET [Concomitant]
  3. SIMVASTATIN [Concomitant]
  4. HYDROCHLOROTHIAZIDE [Concomitant]
  5. ASAPHEN [Concomitant]
  6. ADVIL LIQUI-GELS [Concomitant]
  7. ROCALTROL [Concomitant]
  8. DIOVAN [Concomitant]
  9. AMITRIPTYLINE [Concomitant]
  10. SPIRIVA [Concomitant]
  11. TYLENOL (CAPLET) [Concomitant]
     Dosage: 650 MG, UNK

REACTIONS (3)
  - DIARRHOEA [None]
  - HERNIA REPAIR [None]
  - INVESTIGATION [None]
